FAERS Safety Report 8829551 (Version 1)
Quarter: 2012Q4

REPORT INFORMATION
  Report Type: 
  Country: US (occurrence: US)
  Receive Date: 20121008
  Receipt Date: 20121008
  Transmission Date: 20130627
  Serious: No
  Sender: FDA-Public Use
  Company Number: US-TEVA-326962USA

PATIENT
  Sex: Female
  Weight: 49.03 kg

DRUGS (3)
  1. QVAR [Suspect]
     Indication: ASTHMA
     Dosage: 80 Microgram Daily;
     Route: 055
     Dates: start: 201103
  2. ZYRTEC [Concomitant]
     Indication: HYPERSENSITIVITY
     Dosage: 10 Milligram Daily;
     Route: 048
  3. BENADRYL [Concomitant]
     Indication: HYPERSENSITIVITY
     Route: 048

REACTIONS (4)
  - Vision blurred [Not Recovered/Not Resolved]
  - Headache [Not Recovered/Not Resolved]
  - Dizziness [Recovered/Resolved]
  - Contusion [Unknown]
